FAERS Safety Report 8258776-1 (Version None)
Quarter: 2012Q2

REPORT INFORMATION
  Report Type: 
  Country: None (occurrence: None)
  Receive Date: 20120404
  Receipt Date: 20120323
  Transmission Date: 20120825
  Serious: Yes (Hospitalization)
  Sender: FDA-Public Use
  Company Number: US-SANOFI-AVENTIS-2011SA066048

PATIENT
  Sex: Female
  Weight: 79.3 kg

DRUGS (7)
  1. TOPROL-XL [Concomitant]
     Route: 048
     Dates: start: 20110107
  2. ASPIRIN [Concomitant]
     Route: 048
     Dates: start: 20101208
  3. GLIMEPIRIDE [Concomitant]
     Route: 048
     Dates: start: 20101103
  4. GABAPENTIN [Concomitant]
     Route: 048
     Dates: start: 20110825
  5. POTASSIUM CHLORIDE [Concomitant]
     Route: 048
     Dates: start: 20101208
  6. MULTAQ [Suspect]
     Indication: ATRIAL FIBRILLATION
     Route: 048
     Dates: start: 20110926, end: 20110929
  7. DABIGATRAN ETEXILATE [Concomitant]
     Route: 048
     Dates: start: 20110107

REACTIONS (1)
  - CARDIAC FAILURE CONGESTIVE [None]
